FAERS Safety Report 20069424 (Version 1)
Quarter: 2021Q4

REPORT INFORMATION
  Report Type: Spontaneous
  Country: US (occurrence: None)
  Receive Date: 20211113
  Receipt Date: 20211113
  Transmission Date: 20220303
  Serious: No
  Sender: FDA-Public Use
  Company Number: None

PATIENT
  Age: 87 Year
  Sex: Male
  Weight: 71.1 kg

DRUGS (10)
  1. ERLEADA [Suspect]
     Active Substance: APALUTAMIDE
     Indication: Prostate cancer
     Dosage: FREQUENCY : DAILY;?
     Route: 048
     Dates: start: 20210525
  2. CARVEDILOL [Concomitant]
     Active Substance: CARVEDILOL
  3. FOLIC ACID [Concomitant]
     Active Substance: FOLIC ACID
  4. B Complete 100 [Concomitant]
  5. CALCIUM\VITAMIN D [Concomitant]
     Active Substance: CALCIUM\VITAMIN D
  6. GABAPENTIN [Concomitant]
     Active Substance: GABAPENTIN
  7. OXYBUTYNIN [Concomitant]
     Active Substance: OXYBUTYNIN
  8. ASPIRIN [Concomitant]
     Active Substance: ASPIRIN
  9. CALCIUM [Concomitant]
     Active Substance: CALCIUM
  10. MINERALS\VITAMINS [Concomitant]
     Active Substance: MINERALS\VITAMINS

REACTIONS (6)
  - Constipation [None]
  - Fatigue [None]
  - Gait disturbance [None]
  - Quality of life decreased [None]
  - Prostatic specific antigen increased [None]
  - Disease progression [None]

NARRATIVE: CASE EVENT DATE: 20211112
